FAERS Safety Report 9133197 (Version 1)
Quarter: 2013Q1

REPORT INFORMATION
  Report Type: Spontaneous
  Country: US (occurrence: US)
  Receive Date: 20130126
  Receipt Date: 20130126
  Transmission Date: 20140127
  Serious: No
  Sender: FDA-Public Use
  Company Number: US-009507513-1301USA011178

PATIENT
  Age: 58 Year
  Sex: Male
  Weight: 170 kg

DRUGS (6)
  1. PEGINTRON [Suspect]
     Dosage: 120 MCG/0.5 ML (4 SYRINGES PER PACK)
     Route: 058
  2. ATENOLOL [Concomitant]
  3. OMEPRAZOLE [Concomitant]
  4. IBUPROFEN [Concomitant]
  5. RIBAPAK [Suspect]
     Dosage: 1200 PER DAY
  6. TELAPREVIR [Suspect]

REACTIONS (9)
  - Influenza like illness [Unknown]
  - Pyrexia [Unknown]
  - Eye irritation [Unknown]
  - Fatigue [Unknown]
  - Anal pruritus [Unknown]
  - Decreased appetite [Unknown]
  - Diarrhoea [Unknown]
  - Anorectal discomfort [Unknown]
  - Haemoglobin decreased [Unknown]
